FAERS Safety Report 17749267 (Version 1)
Quarter: 2020Q2

REPORT INFORMATION
  Report Type: Spontaneous
  Country: PT (occurrence: PT)
  Receive Date: 20200505
  Receipt Date: 20200505
  Transmission Date: 20200714
  Serious: Yes (Death, Hospitalization)
  Sender: FDA-Public Use
  Company Number: PT-ACCORD-180798

PATIENT

DRUGS (2)
  1. TRIPTORELIN/TRIPTORELIN ACETATE/TRIPTORELIN EMBONATE [Suspect]
     Active Substance: TRIPTORELIN
     Indication: ANTIANDROGEN THERAPY
     Dosage: DOSE NOT REPORTED
     Route: 065
  2. BICALUTAMIDE. [Suspect]
     Active Substance: BICALUTAMIDE
     Indication: PROSTATE CANCER
     Dosage: DOSE NOT REPORTED
     Route: 065

REACTIONS (11)
  - Death [Fatal]
  - Acute kidney injury [Unknown]
  - Respiratory failure [Unknown]
  - Hydronephrosis [Unknown]
  - Dyspnoea [Unknown]
  - Malaise [Unknown]
  - Ureteric rupture [Unknown]
  - Abdominal pain [Unknown]
  - Hyperkalaemia [Unknown]
  - Anaemia [Unknown]
  - Pallor [Unknown]
